FAERS Safety Report 11084055 (Version 2)
Quarter: 2015Q2

REPORT INFORMATION
  Report Type: Spontaneous
  Country: US (occurrence: US)
  Receive Date: 20150501
  Receipt Date: 20150609
  Transmission Date: 20150821
  Serious: Yes (Other)
  Sender: FDA-Public Use
  Company Number: US-CELGENEUS-USA-2015045164

PATIENT
  Sex: Female
  Weight: 136.65 kg

DRUGS (1)
  1. REVLIMID [Suspect]
     Active Substance: LENALIDOMIDE
     Indication: PLASMA CELL MYELOMA
     Dosage: 15 MILLIGRAM
     Route: 048
     Dates: start: 20141121

REACTIONS (4)
  - Full blood count decreased [Unknown]
  - Laboratory test abnormal [Unknown]
  - Pyrexia [Unknown]
  - Clostridium difficile infection [Unknown]
